FAERS Safety Report 13900506 (Version 1)
Quarter: 2017Q3

REPORT INFORMATION
  Report Type: Spontaneous
  Country: US (occurrence: None)
  Receive Date: 20170818
  Receipt Date: 20170818
  Transmission Date: 20171127
  Serious: No
  Sender: FDA-Public Use
  Company Number: None

PATIENT
  Age: 56 Year
  Sex: Female

DRUGS (10)
  1. OXYCODONE [Concomitant]
     Active Substance: OXYCODONE
  2. ALBUTEROL. [Concomitant]
     Active Substance: ALBUTEROL
  3. FLUTICASONE. [Concomitant]
     Active Substance: FLUTICASONE
  4. OCALIVA [Suspect]
     Active Substance: OBETICHOLIC ACID
     Indication: BILIARY CIRRHOSIS
     Route: 048
     Dates: start: 20161112
  5. PROAIR HFA [Concomitant]
     Active Substance: ALBUTEROL SULFATE
  6. ZYRTEC [Concomitant]
     Active Substance: CETIRIZINE HYDROCHLORIDE
  7. LISINOPRIL. [Concomitant]
     Active Substance: LISINOPRIL
  8. AZATIOPRINE [Concomitant]
     Active Substance: AZATHIOPRINE
  9. CLONAZEPAM. [Concomitant]
     Active Substance: CLONAZEPAM
  10. DIPHEN/ATROP [Concomitant]
     Active Substance: ATROPINE SULFATE\DIPHENOXYLATE

REACTIONS (3)
  - Pruritus [None]
  - Sleep disorder due to general medical condition, insomnia type [None]
  - Therapy change [None]

NARRATIVE: CASE EVENT DATE: 20170814
